FAERS Safety Report 21953528 (Version 1)
Quarter: 2023Q1

REPORT INFORMATION
  Report Type: Report from Study
  Country: US (occurrence: US)
  Receive Date: 20230204
  Receipt Date: 20230204
  Transmission Date: 20230418
  Serious: No
  Sender: FDA-Public Use
  Company Number: US-ACORDA-ACO_172377_2022

PATIENT
  Sex: Male

DRUGS (1)
  1. AMPYRA [Suspect]
     Active Substance: DALFAMPRIDINE
     Indication: Product used for unknown indication
     Dosage: 10 MILLIGRAM, BID
     Route: 065

REACTIONS (7)
  - Temperature intolerance [Unknown]
  - Diplopia [Unknown]
  - Myoclonus [Unknown]
  - Muscular weakness [Unknown]
  - Pain in extremity [Unknown]
  - Gait disturbance [Unknown]
  - Fatigue [Unknown]
